FAERS Safety Report 13011779 (Version 1)
Quarter: 2016Q4

REPORT INFORMATION
  Report Type: Spontaneous
  Country: AU (occurrence: AU)
  Receive Date: 20161209
  Receipt Date: 20161209
  Transmission Date: 20170207
  Serious: Yes (Other)
  Sender: FDA-Public Use
  Company Number: AU-009507513-1612AUS001965

PATIENT
  Sex: Female

DRUGS (3)
  1. EZETIMIBE MSD [Suspect]
     Active Substance: EZETIMIBE
     Dosage: UNK
     Route: 065
  2. METHOTREXATE. [Suspect]
     Active Substance: METHOTREXATE
     Indication: RHEUMATOID ARTHRITIS
     Dosage: 10 MG, QW
     Route: 065
     Dates: start: 20120501
  3. ABATACEPT [Suspect]
     Active Substance: ABATACEPT
     Dosage: SUBCUTANEOUS INJECTION
     Route: 058
     Dates: start: 20120901

REACTIONS (4)
  - Abdominal pain [Unknown]
  - Abdominal distension [Unknown]
  - Hepatic cirrhosis [Unknown]
  - Condition aggravated [Unknown]

NARRATIVE: CASE EVENT DATE: 2014
